FAERS Safety Report 17378425 (Version 1)
Quarter: 2020Q1

REPORT INFORMATION
  Report Type: Spontaneous
  Country: US (occurrence: US)
  Receive Date: 20200205
  Receipt Date: 20200205
  Transmission Date: 20200409
  Serious: Yes (Disabling)
  Sender: FDA-Public Use
  Company Number: None

PATIENT
  Age: 27 Year
  Sex: Male
  Weight: 52 kg

DRUGS (1)
  1. FINABALD [Suspect]
     Active Substance: FINASTERIDE
     Indication: ALOPECIA
     Route: 048

REACTIONS (8)
  - Loss of libido [None]
  - Erectile dysfunction [None]
  - Insomnia [None]
  - Emotional disorder [None]
  - Stress [None]
  - Spermatozoa abnormal [None]
  - Penis disorder [None]
  - Apathy [None]

NARRATIVE: CASE EVENT DATE: 20190107
